FAERS Safety Report 7668580-0 (Version None)
Quarter: 2011Q3

REPORT INFORMATION
  Report Type: 
  Country: None (occurrence: None)
  Receive Date: 20110808
  Receipt Date: 20110808
  Transmission Date: 20111222
  Serious: Yes (Other)
  Sender: FDA-Public Use
  Company Number: None

PATIENT
  Sex: Male
  Weight: 57.6 kg

DRUGS (2)
  1. SIROLIMUS [Suspect]
     Indication: RENAL TRANSPLANT
     Dosage: VARIOUS
     Route: 048
  2. RANOLAZINE PO [Concomitant]
     Dosage: VARIOUS
     Route: 048

REACTIONS (3)
  - IMMUNOSUPPRESSANT DRUG LEVEL INCREASED [None]
  - LABORATORY TEST ABNORMAL [None]
  - DRUG INTERACTION [None]
